FAERS Safety Report 15907703 (Version 1)
Quarter: 2019Q1

REPORT INFORMATION
  Report Type: Spontaneous
  Country: CN (occurrence: CN)
  Receive Date: 20190204
  Receipt Date: 20190204
  Transmission Date: 20190417
  Serious: Yes (Other)
  Sender: FDA-Public Use
  Company Number: CN-FRESENIUS KABI-FK201901085

PATIENT
  Age: 27 Year
  Sex: Female
  Weight: 46 kg

DRUGS (3)
  1. SODIUM CHLORIDE. [Concomitant]
     Active Substance: SODIUM CHLORIDE
     Indication: VEHICLE SOLUTION USE
     Route: 042
     Dates: start: 20181016, end: 20181016
  2. VOLUVEN [Suspect]
     Active Substance: HYDROXYETHYL STARCH 130/0.4
     Indication: VOLUME BLOOD DECREASED
     Route: 042
     Dates: start: 20181016, end: 20181016
  3. CEFAZOLIN SODIUM PENTAHYDRATE [Suspect]
     Active Substance: CEFAZOLIN SODIUM
     Indication: INFECTION
     Dosage: XINTAILIN
     Route: 042
     Dates: start: 20181016, end: 20181016

REACTIONS (4)
  - Skin tightness [Recovering/Resolving]
  - Rash generalised [Recovering/Resolving]
  - Pruritus [Recovering/Resolving]
  - Throat irritation [Recovered/Resolved]

NARRATIVE: CASE EVENT DATE: 20181016
